FAERS Safety Report 7637599-8 (Version None)
Quarter: 2011Q3

REPORT INFORMATION
  Report Type: 
  Country: None (occurrence: None)
  Receive Date: 20110726
  Receipt Date: 20110722
  Transmission Date: 20111222
  Serious: Yes (Death)
  Sender: FDA-Public Use
  Company Number: PHHY2011GB65971

PATIENT
  Age: 67 Year
  Sex: Male

DRUGS (7)
  1. METOCLOPRAMIDE [Concomitant]
     Indication: CHEMOTHERAPY
     Dosage: UNK UKN, UNK
     Dates: start: 20110108
  2. OXALIPLATIN [Suspect]
     Indication: RECTAL CANCER METASTATIC
     Dosage: 250 MG / 3 WEEKS
     Route: 042
     Dates: start: 20110108, end: 20110208
  3. AVASTIN [Suspect]
     Indication: RECTAL CANCER METASTATIC
     Dosage: 635 MG / 3 WEEKS
     Route: 042
     Dates: start: 20110108, end: 20110208
  4. XELODA [Suspect]
     Indication: RECTAL CANCER METASTATIC
     Dosage: 1930 MG / 3 WEEKS
     Route: 042
     Dates: start: 20110108, end: 20110208
  5. CYCLIZINE [Concomitant]
     Indication: CHEMOTHERAPY
     Dosage: 50 MG, UNK
     Route: 048
     Dates: start: 20110108
  6. LOPERAMIDE [Concomitant]
     Indication: CHEMOTHERAPY
     Dosage: 2 MG / AS NECESSARY
     Dates: start: 20110108
  7. OMEPRAZOLE [Concomitant]
     Indication: GASTRITIS
     Dosage: 20 MG/DAY
     Route: 048
     Dates: start: 20101218, end: 20110303

REACTIONS (1)
  - FISTULA [None]
